FAERS Safety Report 24344320 (Version 1)
Quarter: 2024Q3

REPORT INFORMATION
  Report Type: Spontaneous
  Country: US (occurrence: US)
  Receive Date: 20240920
  Receipt Date: 20240920
  Transmission Date: 20241017
  Serious: Yes (Other)
  Sender: AMGEN
  Company Number: US-AMGEN-USASP2024185629

PATIENT
  Sex: Male

DRUGS (1)
  1. REPATHA [Suspect]
     Active Substance: EVOLOCUMAB
     Indication: Hypercholesterolaemia
     Dosage: 140 MILLIGRAM (ABOUT 30-45 DAYS )
     Route: 065

REACTIONS (7)
  - Skin cancer [Recovering/Resolving]
  - Off label use [Unknown]
  - Product storage error [Unknown]
  - Intercepted product administration error [Unknown]
  - Rosacea [Unknown]
  - Blood triglycerides increased [Unknown]
  - Rash [Unknown]

NARRATIVE: CASE EVENT DATE: 20240917
